FAERS Safety Report 4333240-0 (Version None)
Quarter: 2004Q2

REPORT INFORMATION
  Report Type: 
  Country: None (occurrence: None)
  Receive Date: 20040401
  Receipt Date: 20040325
  Transmission Date: 20050107
  Serious: Yes (Other)
  Sender: FDA-Public Use
  Company Number: 2004UW05900

PATIENT
  Age: 50 Year
  Sex: Male

DRUGS (12)
  1. SEROQUEL [Suspect]
     Dosage: 500 MG DAILY PO
     Route: 048
     Dates: start: 20030101, end: 20030201
  2. SERZONE [Suspect]
     Indication: DEPRESSION
     Dosage: 500 MG DAILY PO
     Route: 048
  3. NEURONTIN [Concomitant]
  4. SKELAXIN [Concomitant]
  5. LASIX [Concomitant]
  6. FLOMAX [Concomitant]
  7. ZOCOR [Concomitant]
  8. LORTAB [Concomitant]
  9. METHADONE HCL [Concomitant]
  10. RISPERDAL [Concomitant]
  11. XANAX [Concomitant]
  12. OMEPRAZOLE [Concomitant]

REACTIONS (4)
  - DEPRESSION [None]
  - MEDICATION ERROR [None]
  - PANIC ATTACK [None]
  - SUICIDAL IDEATION [None]
